FAERS Safety Report 15841433 (Version 4)
Quarter: 2020Q3

REPORT INFORMATION
  Report Type: Other
  Country: US (occurrence: US)
  Receive Date: 20190118
  Receipt Date: 20200824
  Transmission Date: 20201102
  Serious: Yes (Other)
  Sender: FDA-Public Use
  Company Number: US-ROCHE-2153814

PATIENT
  Sex: Female

DRUGS (5)
  1. LYRICA [Concomitant]
     Active Substance: PREGABALIN
  2. TRAMADOL. [Concomitant]
     Active Substance: TRAMADOL
  3. BENADRYL [Concomitant]
     Active Substance: DIPHENHYDRAMINE HYDROCHLORIDE
     Dosage: ONGOING: UNKNOWN
     Dates: start: 20180706
  4. OCREVUS [Suspect]
     Active Substance: OCRELIZUMAB
     Indication: PRIMARY PROGRESSIVE MULTIPLE SCLEROSIS
     Dosage: ONGOING: UNKNOWN?DATE OF TREATMENT: 06/JUL/2018, 17/JUL/2018, 17/JAN/2019, 17/JUL/2019, 09/JAN/2020,
     Route: 065
     Dates: start: 20180703
  5. OCREVUS [Suspect]
     Active Substance: OCRELIZUMAB
     Indication: MULTIPLE SCLEROSIS
     Route: 065
     Dates: start: 20180717

REACTIONS (10)
  - Intracranial pressure increased [Unknown]
  - Sciatica [Unknown]
  - Neuralgia [Not Recovered/Not Resolved]
  - Drug hypersensitivity [Unknown]
  - Fatigue [Not Recovered/Not Resolved]
  - Hyperaesthesia [Unknown]
  - Hypoaesthesia [Not Recovered/Not Resolved]
  - Ageusia [Unknown]
  - Cough [Unknown]
  - Oral discomfort [Not Recovered/Not Resolved]
